FAERS Safety Report 11809979 (Version 2)
Quarter: 2015Q4

REPORT INFORMATION
  Report Type: Report from Study
  Country: TW (occurrence: TW)
  Receive Date: 20151208
  Receipt Date: 20151221
  Transmission Date: 20160305
  Serious: Yes (Death, Life-Threatening, Hospitalization, Other)
  Sender: FDA-Public Use
  Company Number: PHHY2015TW123760

PATIENT
  Age: 63 Year
  Sex: Male
  Weight: 69 kg

DRUGS (35)
  1. NEXIUM [Concomitant]
     Active Substance: ESOMEPRAZOLE MAGNESIUM
     Indication: PRODUCT USED FOR UNKNOWN INDICATION
     Dosage: 1 DF, QD, BEFORE EATING
     Route: 048
     Dates: start: 20151019
  2. HUMULIN R [Concomitant]
     Active Substance: INSULIN HUMAN
     Indication: HYPERGLYCAEMIA
     Dosage: 1000 UG/ML, UNK
     Dates: start: 20151109
  3. ALPRALINE [Concomitant]
     Active Substance: ALPRAZOLAM
     Indication: INSOMNIA
     Dosage: 0.5 MG, UNK
     Route: 065
     Dates: start: 20151110
  4. ASPIRIN. [Concomitant]
     Active Substance: ASPIRIN
     Indication: PRODUCT USED FOR UNKNOWN INDICATION
     Dosage: 1 DF, QD AFTER EATING
     Route: 048
  5. IMOVANE [Concomitant]
     Active Substance: ZOPICLONE
     Indication: PRODUCT USED FOR UNKNOWN INDICATION
     Dosage: 1 DF, STAT (IMMEDIATELY)
     Route: 048
     Dates: start: 20151023
  6. MORPHINE [Concomitant]
     Active Substance: MORPHINE
     Indication: PRODUCT USED FOR UNKNOWN INDICATION
     Dosage: 3 MG, ONCE/SINGLE
     Route: 030
     Dates: start: 20151106
  7. TARGOCID [Concomitant]
     Active Substance: TEICOPLANIN
     Dosage: 400 MG, TID
     Route: 042
     Dates: start: 20151108
  8. TATUMCEF [Concomitant]
     Indication: PRODUCT USED FOR UNKNOWN INDICATION
     Dosage: 1000 MG, ONCE/SINGLE
     Route: 042
     Dates: start: 20151106
  9. KALIMATE [Concomitant]
     Active Substance: CALCIUM POLYSTYRENE SULFONATE
     Indication: PRODUCT USED FOR UNKNOWN INDICATION
     Dosage: 2 DF, TID (2 PACKS)
     Route: 048
     Dates: start: 20151106
  10. TARGOCID [Concomitant]
     Active Substance: TEICOPLANIN
     Indication: PRODUCT USED FOR UNKNOWN INDICATION
     Dosage: 800 MG, ONCE/SINGLE (STAT)
     Route: 042
     Dates: start: 20151106
  11. ULTRACET [Concomitant]
     Active Substance: ACETAMINOPHEN\TRAMADOL HYDROCHLORIDE
     Indication: CHEST PAIN
     Dosage: 1 DF, Q6H (IF CHEST PAIN)
     Route: 048
     Dates: start: 20151106
  12. CORDARONE [Concomitant]
     Active Substance: AMIODARONE HYDROCHLORIDE
     Indication: PRODUCT USED FOR UNKNOWN INDICATION
     Dosage: 1 DF, QD
     Route: 048
     Dates: start: 20151025
  13. ZOLEDRONATE [Suspect]
     Active Substance: ZOLEDRONIC ACID
     Indication: PLASMA CELL MYELOMA
     Dosage: 4 MG/ VIAL, UNK
     Route: 042
     Dates: start: 20130205, end: 20150626
  14. NINCORT [Concomitant]
     Indication: MOUTH ULCERATION
     Dosage: AS ORDER, 6G / TUBE
     Route: 048
     Dates: start: 20151020
  15. PARAMOL [Concomitant]
     Indication: PROPHYLAXIS
     Dosage: 1 DF, Q6HPRN
     Route: 048
     Dates: start: 20151020
  16. OXYGEN. [Concomitant]
     Active Substance: OXYGEN
     Indication: PRODUCT USED FOR UNKNOWN INDICATION
     Route: 065
  17. HEPARIN [Concomitant]
     Active Substance: HEPARIN SODIUM
     Indication: CATHETER PLACEMENT
     Dosage: 15500 U, AS ORDER, 25000 U/5 ML/VIAL
     Route: 065
     Dates: start: 20151022
  18. PRIMPERAN [Concomitant]
     Active Substance: METOCLOPRAMIDE HYDROCHLORIDE
     Indication: PRODUCT USED FOR UNKNOWN INDICATION
     Dosage: 10 MG, QD, 10 MG/2ML/AMPOULE
     Route: 042
     Dates: start: 20151022
  19. MEPEM//MEROPENEM TRIHYDRATE [Concomitant]
     Indication: PRODUCT USED FOR UNKNOWN INDICATION
     Dosage: 500 MG, QN POST HD, 250 MG/VIAL
     Route: 042
     Dates: start: 20151023
  20. SEROQUEL [Concomitant]
     Active Substance: QUETIAPINE FUMARATE
     Indication: PRODUCT USED FOR UNKNOWN INDICATION
     Dosage: 1 DF, PRN AT BEDTIME
     Route: 048
     Dates: start: 20151023
  21. ALBIOMIN [Concomitant]
     Indication: PRODUCT USED FOR UNKNOWN INDICATION
     Dosage: 20 G, TIW, 10 G/50 ML 20 PERCENT/ VIAL
     Route: 041
     Dates: start: 20151024
  22. SALINE ORAL OTC [Concomitant]
     Active Substance: SODIUM CHLORIDE
     Indication: PRODUCT USED FOR UNKNOWN INDICATION
     Dosage: 72 ML, QD 500 ML ML / BAG
     Route: 041
     Dates: start: 20151020
  23. POTASSIUM GLUCONATE [Concomitant]
     Active Substance: POTASSIUM GLUCONATE
     Indication: PRODUCT USED FOR UNKNOWN INDICATION
     Dosage: 3 DF, TID AFTER EATING 2.54 MEQ OF K
     Route: 048
     Dates: start: 20151022
  24. ERAXIS [Concomitant]
     Active Substance: ANIDULAFUNGIN
     Indication: PRODUCT USED FOR UNKNOWN INDICATION
     Dosage: 100 MG, QD, 100 MG/VIAL
     Route: 041
     Dates: start: 20151023
  25. VITAMIN B COMPLEX [Concomitant]
     Active Substance: CYANOCOBALAMIN\DEXPANTHENOL\NIACINAMIDE\PYRIDOXINE HYDROCHLORIDE\RIBOFLAVIN 5^-PHOSPHATE SODIUM\THIAMINE HYDROCHLORIDE\VITAMIN B COMPLEX
     Indication: PRODUCT USED FOR UNKNOWN INDICATION
     Dosage: 1 DF, QD
     Route: 048
     Dates: start: 20151027
  26. VITAMIN C [Concomitant]
     Active Substance: ASCORBIC ACID
     Indication: PRODUCT USED FOR UNKNOWN INDICATION
     Dosage: 1 DF, QD
     Route: 048
     Dates: start: 20151027
  27. TARGOCID [Concomitant]
     Active Substance: TEICOPLANIN
     Dosage: 800 MG, Q12H
     Route: 042
     Dates: start: 20151107
  28. SALINE ORAL OTC [Concomitant]
     Active Substance: SODIUM CHLORIDE
     Dosage: 48 ML, QD 100 ML ML / BAG
     Route: 041
     Dates: start: 20151020
  29. EURODIN [Concomitant]
     Active Substance: ESTAZOLAM
     Indication: INSOMNIA
     Dosage: 1 DF, PRN
     Route: 048
     Dates: start: 20151028
  30. GASCON [Concomitant]
     Active Substance: DIMETHICONE
     Indication: PRODUCT USED FOR UNKNOWN INDICATION
     Dosage: 1 DF, TID, AFTER EATING
     Route: 048
     Dates: start: 20151018
  31. SOLU-CORTEF [Concomitant]
     Active Substance: HYDROCORTISONE SODIUM SUCCINATE
     Indication: PRODUCT USED FOR UNKNOWN INDICATION
     Dosage: 200 MG, QD, 100 MG/ VIAL
     Route: 041
     Dates: start: 20151023
  32. MIDORINE [Concomitant]
     Active Substance: MIDODRINE
     Indication: BLOOD PRESSURE SYSTOLIC INCREASED
     Dosage: 2 DF, Q6H PRN
     Route: 048
     Dates: start: 20151031
  33. TATUMCEF [Concomitant]
     Dosage: 500 MG, QN
     Route: 042
     Dates: start: 20151107
  34. NITRODERM [Concomitant]
     Active Substance: NITROGLYCERIN
     Indication: PRODUCT USED FOR UNKNOWN INDICATION
     Dosage: 1 DF, QD (REMOVE IF SBP IS LESS THAN 80)
     Route: 065
     Dates: start: 20151106
  35. CORTISONE [Concomitant]
     Active Substance: CORTISONE\HYDROCORTISONE
     Indication: PRODUCT USED FOR UNKNOWN INDICATION
     Dosage: 1 DF, QD
     Route: 048
     Dates: start: 20151103

REACTIONS (35)
  - Fluid overload [Not Recovered/Not Resolved]
  - Red cell distribution width increased [Unknown]
  - Pericardial effusion [Unknown]
  - Generalised oedema [Not Recovered/Not Resolved]
  - Cardiomegaly [Unknown]
  - Lung consolidation [Unknown]
  - Blood lactic acid increased [Unknown]
  - Cardiac arrest [Fatal]
  - Pleural effusion [Not Recovered/Not Resolved]
  - Chronic kidney disease [Not Recovered/Not Resolved]
  - Lymphocyte percentage decreased [Unknown]
  - Protein total decreased [Unknown]
  - Hypotension [Unknown]
  - Dyspnoea [Recovering/Resolving]
  - Acute kidney injury [Unknown]
  - Atrial fibrillation [Unknown]
  - Heart rate irregular [Unknown]
  - Haemodynamic instability [Not Recovered/Not Resolved]
  - Cardiorenal syndrome [Not Recovered/Not Resolved]
  - Pneumonia [Recovering/Resolving]
  - Cardiac amyloidosis [Unknown]
  - Platelet count increased [Unknown]
  - Metabolic acidosis [Unknown]
  - Liver function test abnormal [Unknown]
  - Implant site extravasation [Not Recovered/Not Resolved]
  - Cardiac failure acute [Not Recovered/Not Resolved]
  - Blood creatinine increased [Unknown]
  - Urine output decreased [Not Recovered/Not Resolved]
  - Fungaemia [Recovering/Resolving]
  - Aortic disorder [Unknown]
  - Aortic calcification [Unknown]
  - General physical health deterioration [Unknown]
  - Blood calcium decreased [Unknown]
  - Respiratory distress [Unknown]
  - Sepsis [Not Recovered/Not Resolved]

NARRATIVE: CASE EVENT DATE: 20150927
